FAERS Safety Report 4263900-1 (Version None)
Quarter: 2004Q1

REPORT INFORMATION
  Report Type: 
  Country: None (occurrence: None)
  Receive Date: 20040102
  Receipt Date: 20031219
  Transmission Date: 20041129
  Serious: Yes (Hospitalization)
  Sender: FDA-Public Use
  Company Number: DE_031212599

PATIENT
  Age: 71 Year
  Sex: Female

DRUGS (7)
  1. EVISTA [Suspect]
     Indication: OSTEOPOROSIS
     Dates: start: 20020827, end: 20030101
  2. CALCIUM [Concomitant]
  3. NON-STEROIDAL ANTI-INFLAMMATORY DRUGS [Concomitant]
  4. PARKINSON  DRUG [Concomitant]
  5. CORTISONE [Concomitant]
  6. ANTISTAX [Concomitant]
  7. VITAMIN E [Concomitant]

REACTIONS (1)
  - SYNCOPE [None]
